FAERS Safety Report 18802077 (Version 1)
Quarter: 2021Q1

REPORT INFORMATION
  Report Type: Spontaneous
  Country: CN (occurrence: CN)
  Receive Date: 20210128
  Receipt Date: 20210128
  Transmission Date: 20210419
  Serious: Yes (Hospitalization, Other)
  Sender: FDA-Public Use
  Company Number: CN-GLAXOSMITHKLINE-CN2021APC014664

PATIENT
  Age: 30 Year
  Sex: Female
  Weight: 65 kg

DRUGS (3)
  1. LEVETIRACETAM. [Concomitant]
     Active Substance: LEVETIRACETAM
     Indication: EPILEPSY
     Dosage: 2 DF, BID
     Dates: start: 2020
  2. LAMICTAL [Suspect]
     Active Substance: LAMOTRIGINE
     Indication: EPILEPSY
     Dosage: 50 MG, QD
     Route: 048
     Dates: start: 20201210, end: 20210101
  3. CARBAMAZEPINE. [Concomitant]
     Active Substance: CARBAMAZEPINE
     Indication: EPILEPSY
     Dosage: 1.5 DF, BID

REACTIONS (16)
  - Drug eruption [Recovering/Resolving]
  - Papule [Unknown]
  - Pharyngeal erythema [Unknown]
  - Urticaria [Unknown]
  - Target skin lesion [Unknown]
  - Tonsillar hypertrophy [Unknown]
  - Erythema [Unknown]
  - Pruritus [Unknown]
  - Mouth ulceration [Unknown]
  - Mucosal erosion [Unknown]
  - Rash [Recovering/Resolving]
  - Oral mucosal eruption [Unknown]
  - Condition aggravated [Unknown]
  - Erythema multiforme [Unknown]
  - Lip erosion [Unknown]
  - Oral mucosa erosion [Unknown]

NARRATIVE: CASE EVENT DATE: 20201227
